FAERS Safety Report 14231673 (Version 1)
Quarter: 2017Q4

REPORT INFORMATION
  Report Type: Spontaneous
  Country: US (occurrence: US)
  Receive Date: 20171128
  Receipt Date: 20171128
  Transmission Date: 20180321
  Serious: No
  Sender: FDA-Public Use
  Company Number: US-GLAXOSMITHKLINE-US2017178164

PATIENT
  Age: 70 Year
  Sex: Male

DRUGS (1)
  1. VOLTAREN [Suspect]
     Active Substance: DICLOFENAC SODIUM
     Indication: NECK PAIN
     Dosage: UNK
     Dates: start: 20171013, end: 20171113

REACTIONS (6)
  - Application site pain [Unknown]
  - Application site scab [Unknown]
  - Application site ulcer [Unknown]
  - Off label use [Unknown]
  - Discomfort [Unknown]
  - Application site erythema [Unknown]

NARRATIVE: CASE EVENT DATE: 20171027
